FAERS Safety Report 13647406 (Version 1)
Quarter: 2017Q2

REPORT INFORMATION
  Report Type: Spontaneous
  Country: US (occurrence: US)
  Receive Date: 20170613
  Receipt Date: 20170613
  Transmission Date: 20170830
  Serious: No
  Sender: FDA-Public Use
  Company Number: None

PATIENT
  Age: 54 Year
  Sex: Female

DRUGS (1)
  1. BOTOX [Suspect]
     Active Substance: ONABOTULINUMTOXINA
     Dosage: 200UNITS Q3MONTHS IM
     Route: 030
     Dates: start: 20161020

REACTIONS (2)
  - General symptom [None]
  - Facial paralysis [None]

NARRATIVE: CASE EVENT DATE: 20170301
